FAERS Safety Report 23109008 (Version 1)
Quarter: 2023Q4

REPORT INFORMATION
  Report Type: Spontaneous
  Country: US (occurrence: None)
  Receive Date: 20231025
  Receipt Date: 20231025
  Transmission Date: 20240110
  Serious: No
  Sender: FDA-Public Use
  Company Number: None

PATIENT
  Age: 18 Year
  Sex: Female
  Weight: 67.5 kg

DRUGS (1)
  1. ORENCIA [Suspect]
     Active Substance: ABATACEPT
     Indication: Morphoea
     Dosage: OTHER QUANTITY : 4 INJECTION(S);?OTHER FREQUENCY : ONCE A WEEK;?
     Route: 030

REACTIONS (4)
  - Fatigue [None]
  - Nausea [None]
  - Abdominal pain upper [None]
  - Injection site pain [None]

NARRATIVE: CASE EVENT DATE: 20231025
